FAERS Safety Report 9645775 (Version 1)
Quarter: 2013Q4

REPORT INFORMATION
  Report Type: Spontaneous
  Country: US (occurrence: None)
  Receive Date: 20131023
  Receipt Date: 20131023
  Transmission Date: 20140711
  Serious: Yes (Hospitalization, Other)
  Sender: FDA-Public Use
  Company Number: 2013-US-001943

PATIENT
  Age: 53 Year
  Sex: Female

DRUGS (1)
  1. XYREM [Suspect]
     Dates: start: 2009, end: 2009

REACTIONS (5)
  - Wrist fracture [None]
  - Fall [None]
  - Balance disorder [None]
  - Dysarthria [None]
  - Somnolence [None]
